FAERS Safety Report 16204771 (Version 2)
Quarter: 2020Q1

REPORT INFORMATION
  Report Type: Spontaneous
  Country: US (occurrence: US)
  Receive Date: 20190416
  Receipt Date: 20200221
  Transmission Date: 20200409
  Serious: Yes (Other)
  Sender: FDA-Public Use
  Company Number: US-ASTRAZENECA-2019SE54233

PATIENT
  Age: 22610 Day
  Sex: Male
  Weight: 92.1 kg

DRUGS (60)
  1. NEXIUM [Suspect]
     Active Substance: ESOMEPRAZOLE MAGNESIUM
     Indication: GASTROOESOPHAGEAL REFLUX DISEASE
     Route: 048
     Dates: start: 20110724
  2. LISINOPRIL. [Concomitant]
     Active Substance: LISINOPRIL
     Indication: HYPERTENSION
     Route: 065
     Dates: start: 2017
  3. CHLORTHALIDONE. [Concomitant]
     Active Substance: CHLORTHALIDONE
     Route: 048
     Dates: start: 20171017
  4. COLCHICINE. [Concomitant]
     Active Substance: COLCHICINE
     Indication: GOUT
     Route: 048
     Dates: start: 20171017
  5. COLACE [Concomitant]
     Active Substance: DOCUSATE SODIUM
     Dosage: 100.0MG AS REQUIRED
     Route: 048
     Dates: start: 20170131
  6. ZANAFLEX [Concomitant]
     Active Substance: TIZANIDINE HYDROCHLORIDE
     Route: 065
     Dates: start: 20131031
  7. DETROL [Concomitant]
     Active Substance: TOLTERODINE TARTRATE
     Route: 048
     Dates: start: 20130519
  8. CARBOXYMETHYLCELLULOSE SODIUM. [Concomitant]
     Active Substance: CARBOXYMETHYLCELLULOSE SODIUM
     Route: 047
     Dates: start: 20121016
  9. DIPHENHYDRAMINE. [Concomitant]
     Active Substance: DIPHENHYDRAMINE
     Route: 048
     Dates: start: 20101008
  10. NEXIUM [Suspect]
     Active Substance: ESOMEPRAZOLE MAGNESIUM
     Indication: GASTROOESOPHAGEAL REFLUX DISEASE
     Route: 048
     Dates: start: 20091104
  11. ASPIRIN. [Concomitant]
     Active Substance: ASPIRIN
     Indication: CARDIAC DISORDER
     Route: 065
     Dates: start: 2009, end: 2017
  12. INDOCIN [Concomitant]
     Active Substance: INDOMETHACIN
     Route: 048
     Dates: start: 20170129
  13. PERCOCET [Concomitant]
     Active Substance: ACETAMINOPHEN\OXYCODONE HYDROCHLORIDE
     Route: 048
     Dates: start: 20150417
  14. FLAREX [Concomitant]
     Active Substance: FLUOROMETHOLONE ACETATE
     Route: 065
     Dates: start: 20101122
  15. PROMETHAZINE [Concomitant]
     Active Substance: PROMETHAZINE HYDROCHLORIDE
     Dosage: 25.0MG AS REQUIRED
     Route: 048
     Dates: start: 20101122
  16. SENNA [Concomitant]
     Active Substance: SENNA LEAF\SENNOSIDES\SENNOSIDES A AND B
     Dosage: 8.6MG AS REQUIRED
     Route: 048
     Dates: start: 20091202
  17. NEOSPORIN [Concomitant]
     Active Substance: BACITRACIN ZINC\NEOMYCIN SULFATE\POLYMYXIN B SULFATE
     Route: 065
     Dates: start: 20101118
  18. ACIPHEX [Concomitant]
     Active Substance: RABEPRAZOLE SODIUM
     Route: 048
     Dates: start: 20171031
  19. IBUPROFEN. [Concomitant]
     Active Substance: IBUPROFEN
     Route: 048
     Dates: start: 20160517
  20. MACROBID [Concomitant]
     Active Substance: NITROFURANTOIN\NITROFURANTOIN MONOHYDRATE
     Route: 065
     Dates: start: 20120704
  21. NEXIUM [Suspect]
     Active Substance: ESOMEPRAZOLE MAGNESIUM
     Indication: GASTROOESOPHAGEAL REFLUX DISEASE
     Route: 048
     Dates: start: 20101024
  22. ATORVASTATIN [Concomitant]
     Active Substance: ATORVASTATIN
     Indication: BLOOD CHOLESTEROL INCREASED
     Route: 065
     Dates: start: 2010, end: 2017
  23. ATENOLOL. [Concomitant]
     Active Substance: ATENOLOL
     Route: 048
     Dates: start: 20170724
  24. CLOTRIMAZOLE. [Concomitant]
     Active Substance: CLOTRIMAZOLE
     Dosage: 1% TWO TIMES DAILY
     Route: 061
     Dates: start: 20170302
  25. GUAIFENESIN/DEXTRO [Concomitant]
     Dosage: 100.0MG AS REQUIRED
     Route: 048
     Dates: start: 20170206
  26. TYLENOL [Concomitant]
     Active Substance: ACETAMINOPHEN
     Route: 048
     Dates: start: 20160912
  27. ALFUZOSIN [Concomitant]
     Active Substance: ALFUZOSIN
     Route: 048
     Dates: start: 20130315
  28. SEPTRA [Concomitant]
     Active Substance: SULFAMETHOXAZOLE\TRIMETHOPRIM
     Route: 048
     Dates: start: 20130315
  29. CEPHALEXIN. [Concomitant]
     Active Substance: CEPHALEXIN
     Route: 065
     Dates: start: 20110112
  30. CLOPIDOGREL [Concomitant]
     Active Substance: CLOPIDOGREL BISULFATE
     Route: 048
     Dates: start: 20101215
  31. OXYMETAZOLINE [Concomitant]
     Active Substance: OXYMETAZOLINE
     Route: 065
     Dates: start: 20090112
  32. BOOSTRIX [Concomitant]
     Active Substance: TETANUS TOXOID, REDUCED DIPHTHERIA TOXOID AND ACELLULAR PERTUSSIS VACCINE, ADSORBED ANTIGENS
     Route: 065
     Dates: start: 20130727
  33. CHOLECALCIFEROL [Concomitant]
     Active Substance: CHOLECALCIFEROL
     Route: 048
     Dates: start: 20180110
  34. ACIPHEX [Concomitant]
     Active Substance: RABEPRAZOLE SODIUM
     Route: 048
     Dates: start: 20170924
  35. METFORMIN [Concomitant]
     Active Substance: METFORMIN HYDROCHLORIDE
     Indication: DIABETES MELLITUS
     Route: 065
     Dates: start: 2013, end: 2017
  36. DULCOLAX NOS [Concomitant]
     Active Substance: BISACODYL OR DOCUSATE SODIUM
     Dosage: AT NOON
     Route: 048
     Dates: start: 20170516
  37. PERIOGARD [Concomitant]
     Active Substance: CHLORHEXIDINE GLUCONATE
     Route: 065
     Dates: start: 20170516
  38. MIRALAX [Concomitant]
     Active Substance: POLYETHYLENE GLYCOL 3350
     Route: 065
     Dates: start: 20170316
  39. GOLYTELY [Concomitant]
     Active Substance: POLYETHYLENE GLYCOL 3350\POTASSIUM CHLORIDE\SODIUM BICARBONATE\SODIUM CHLORIDE\SODIUM SULFATE ANHYDROUS
     Route: 065
     Dates: start: 20170228
  40. BENZOCAINE/MENTHOL [Concomitant]
     Route: 048
     Dates: start: 20160912
  41. NEXIUM [Suspect]
     Active Substance: ESOMEPRAZOLE MAGNESIUM
     Indication: GASTROOESOPHAGEAL REFLUX DISEASE
     Route: 048
     Dates: start: 200911, end: 201708
  42. CYCLOBENZAPRINE. [Concomitant]
     Active Substance: CYCLOBENZAPRINE
     Route: 048
     Dates: start: 20171017
  43. CETRIZINE [Concomitant]
     Active Substance: CETIRIZINE HYDROCHLORIDE
     Route: 048
     Dates: start: 20171005
  44. HYDROCODONE BITARTRATE AND ACETAMINOPHEN [Concomitant]
     Active Substance: ACETAMINOPHEN\HYDROCODONE BITARTRATE
     Route: 048
     Dates: start: 20170516
  45. AUGMENTIN [Concomitant]
     Active Substance: AMOXICILLIN\CLAVULANATE POTASSIUM
     Route: 048
     Dates: start: 20160912
  46. VALIUM [Concomitant]
     Active Substance: DIAZEPAM
     Route: 048
     Dates: start: 20150630
  47. ATROVENT [Concomitant]
     Active Substance: IPRATROPIUM BROMIDE
     Route: 065
     Dates: start: 20121016
  48. HYDROCORTISONE. [Concomitant]
     Active Substance: HYDROCORTISONE
     Route: 061
     Dates: start: 20101008
  49. FLUTICASONE. [Concomitant]
     Active Substance: FLUTICASONE
     Dosage: 50MCG ONCE DAILY
     Route: 065
     Dates: start: 20171005
  50. MOBIC [Concomitant]
     Active Substance: MELOXICAM
     Route: 048
     Dates: start: 20170425
  51. PHENAZOPYRIDINE. [Concomitant]
     Active Substance: PHENAZOPYRIDINE
     Route: 048
     Dates: start: 20120704
  52. LEVITRA [Concomitant]
     Active Substance: VARDENAFIL HYDROCHLORIDE
     Route: 048
     Dates: start: 20120402
  53. NIASPAN [Concomitant]
     Active Substance: NIACIN
     Route: 048
     Dates: start: 20091128
  54. SILDENAFIL. [Concomitant]
     Active Substance: SILDENAFIL
     Route: 048
     Dates: start: 20171017
  55. MOVIPREP [Concomitant]
     Active Substance: ASCORBIC ACID\POLYETHYLENE GLYCOL 3350\POTASSIUM CHLORIDE\SODIUM ASCORBATE\SODIUM CHLORIDE\SODIUM SULFATE
     Dosage: AS DIRECTED BEFORE COLONOSCOPY
     Route: 065
     Dates: start: 20170516
  56. ALLOPURINOL. [Concomitant]
     Active Substance: ALLOPURINOL
     Route: 048
     Dates: start: 20170326
  57. ULTRAM [Concomitant]
     Active Substance: TRAMADOL HYDROCHLORIDE
     Route: 048
     Dates: start: 20141105
  58. NEURONTIN [Concomitant]
     Active Substance: GABAPENTIN
     Route: 048
     Dates: start: 20130627
  59. OXYBUTIN [Concomitant]
     Active Substance: OXYBUTYNIN
     Route: 048
     Dates: start: 20130315
  60. MOXIFLOXACIN. [Concomitant]
     Active Substance: MOXIFLOXACIN
     Route: 065
     Dates: start: 20101122

REACTIONS (2)
  - Chronic kidney disease [Not Recovered/Not Resolved]
  - Nephropathy [Unknown]

NARRATIVE: CASE EVENT DATE: 20170404
